FAERS Safety Report 19502103 (Version 1)
Quarter: 2021Q3

REPORT INFORMATION
  Report Type: Spontaneous
  Country: FR (occurrence: FR)
  Receive Date: 20210707
  Receipt Date: 20210707
  Transmission Date: 20211014
  Serious: Yes (Hospitalization)
  Sender: FDA-Public Use
  Company Number: FR-ACCORD-230804

PATIENT
  Age: 83 Year
  Sex: Female

DRUGS (2)
  1. CLOPIDOGREL [Suspect]
     Active Substance: CLOPIDOGREL BISULFATE
     Indication: STENT PATENCY MAINTENANCE
     Route: 048
     Dates: start: 20210205
  2. ELIQUIS [Suspect]
     Active Substance: APIXABAN
     Indication: STENT PATENCY MAINTENANCE
     Dosage: 2.5 MG, FILM?COATED TABLET
     Route: 048
     Dates: start: 20210505, end: 20210515

REACTIONS (1)
  - Post procedural haematoma [Recovered/Resolved]

NARRATIVE: CASE EVENT DATE: 20210515
